FAERS Safety Report 6293576-3 (Version None)
Quarter: 2009Q3

REPORT INFORMATION
  Report Type: 
  Country: None (occurrence: None)
  Receive Date: 20090729
  Receipt Date: 20090707
  Transmission Date: 20100115
  Serious: Yes (Other)
  Sender: FDA-Public Use
  Company Number: JPI-P-008075

PATIENT
  Age: 59 Year
  Sex: Male

DRUGS (6)
  1. XYREM [Suspect]
     Indication: CATAPLEXY
     Dosage: 4.5 GM (2.25 GM, 2 IN 1 D), ORAL; 6 GM (3 GM, 2 IN 1 D), ORAL; 2 IN 1 D, ORAL
     Route: 048
  2. VALPROATE SODIUM [Concomitant]
  3. METHYLPHENIDATE HCL [Concomitant]
  4. DESMOPRESSIN ACETATE [Concomitant]
  5. METHOTREXATE [Concomitant]
  6. SERTRALINE [Concomitant]

REACTIONS (4)
  - DEFAECATION URGENCY [None]
  - FAECAL INCONTINENCE [None]
  - MICTURITION URGENCY [None]
  - URINARY INCONTINENCE [None]
